FAERS Safety Report 7216948-9 (Version None)
Quarter: 2011Q1

REPORT INFORMATION
  Report Type: 
  Country: None (occurrence: None)
  Receive Date: 20110110
  Receipt Date: 20110105
  Transmission Date: 20110831
  Serious: No
  Sender: FDA-Public Use
  Company Number: US-ROXANE LABORATORIES, INC.-2011-RO-00023RO

PATIENT
  Sex: Female

DRUGS (2)
  1. FENTANYL [Concomitant]
     Indication: PAIN
  2. MORPHINE [Suspect]
     Indication: PAIN
     Route: 048
     Dates: start: 20110104

REACTIONS (1)
  - ERYTHEMA [None]
